FAERS Safety Report 21899205 (Version 3)
Quarter: 2023Q1

REPORT INFORMATION
  Report Type: Report from Study
  Country: US (occurrence: US)
  Receive Date: 20230123
  Receipt Date: 20230202
  Transmission Date: 20230418
  Serious: Yes (Hospitalization)
  Sender: FDA-Public Use
  Company Number: US-ABBVIE-4279027

PATIENT
  Age: 57 Year
  Sex: Female

DRUGS (3)
  1. SKYRIZI [Suspect]
     Active Substance: RISANKIZUMAB-RZAA
     Indication: Crohn^s disease
     Dosage: THERAPY END DATE SHOULD BE 2022?600MG?WEEK 0
     Route: 042
     Dates: start: 202209
  2. SKYRIZI [Suspect]
     Active Substance: RISANKIZUMAB-RZAA
     Indication: Crohn^s disease
     Dosage: START DATE AND END DATE SHOULD BE 2022?WEEK 4
     Route: 042
  3. SKYRIZI [Suspect]
     Active Substance: RISANKIZUMAB-RZAA
     Indication: Crohn^s disease
     Dosage: WEEK 12 ?360MG
     Route: 042
     Dates: start: 20221202

REACTIONS (9)
  - Wound secretion [Not Recovered/Not Resolved]
  - Peripheral swelling [Not Recovered/Not Resolved]
  - Abdominal distension [Unknown]
  - Skin ulcer [Not Recovered/Not Resolved]
  - Insomnia [Unknown]
  - Nausea [Unknown]
  - Decreased appetite [Unknown]
  - Arthralgia [Unknown]
  - Fatigue [Unknown]

NARRATIVE: CASE EVENT DATE: 20221202
